FAERS Safety Report 17225181 (Version 1)
Quarter: 2019Q4

REPORT INFORMATION
  Report Type: Spontaneous
  Country: US (occurrence: US)
  Receive Date: 20191209
  Receipt Date: 20191209
  Transmission Date: 20200122
  Serious: Yes (Other)
  Sender: FDA-Public Use
  Company Number: None

PATIENT
  Age: 60 Year
  Sex: Male

DRUGS (2)
  1. ZOMETA [Concomitant]
     Active Substance: ZOLEDRONIC ACID
  2. ABIRATERONE ACETATE. [Suspect]
     Active Substance: ABIRATERONE ACETATE
     Indication: PROSTATE CANCER
     Dates: start: 20191118, end: 20191205

REACTIONS (3)
  - Bone disorder [None]
  - Tooth extraction [None]
  - Therapy cessation [None]

NARRATIVE: CASE EVENT DATE: 20191206
